FAERS Safety Report 5047960-6 (Version None)
Quarter: 2006Q3

REPORT INFORMATION
  Report Type: 
  Country: None (occurrence: None)
  Receive Date: 20060710
  Receipt Date: 20060710
  Transmission Date: 20061208
  Serious: Yes (Other)
  Sender: FDA-Public Use
  Company Number: None

PATIENT
  Age: 29 Year
  Sex: Female
  Weight: 63.5036 kg

DRUGS (6)
  1. AMBIEN [Suspect]
     Indication: SLEEP DISORDER
     Dosage: 5MG  ONCE DAILY ORALLY
     Route: 048
     Dates: start: 20060628
  2. PANCREASE FORTE [Concomitant]
  3. CITRACEL [Concomitant]
  4. PRILOSEC OTC [Concomitant]
  5. EFFEXOR [Concomitant]
  6. BUSPAR [Concomitant]

REACTIONS (2)
  - AMNESIA [None]
  - ROAD TRAFFIC ACCIDENT [None]
